FAERS Safety Report 9100236 (Version 2)
Quarter: 2013Q1

REPORT INFORMATION
  Report Type: Spontaneous
  Country: AT (occurrence: AT)
  Receive Date: 20130215
  Receipt Date: 20130220
  Transmission Date: 20140127
  Serious: Yes (Hospitalization)
  Sender: FDA-Public Use
  Company Number: AT-ASTRAZENECA-2013SE09490

PATIENT
  Age: 47 Year
  Sex: Male

DRUGS (11)
  1. LISINOPRIL [Suspect]
     Dosage: LISINOPRIL GENERIC 10 MG DAILY
     Dates: start: 20121008
  2. TRESLEEN [Suspect]
     Route: 065
     Dates: start: 20121006, end: 20121007
  3. TRESLEEN [Suspect]
     Route: 065
     Dates: start: 20121008, end: 20121017
  4. TRESLEEN [Suspect]
     Route: 065
     Dates: start: 20121018, end: 20121021
  5. ZELDOX [Suspect]
     Route: 065
     Dates: start: 20121004
  6. LAMICTAL [Concomitant]
     Dates: start: 20121018, end: 20121031
  7. LAMICTAL [Concomitant]
     Dates: start: 20121101, end: 20121113
  8. LAMICTAL [Concomitant]
     Dates: start: 20121114, end: 20121129
  9. LAMICTAL [Concomitant]
     Dates: start: 20121130
  10. TRITTICO [Concomitant]
     Dates: start: 20121018
  11. GLUCOPHAGE [Concomitant]
     Dates: start: 20121107

REACTIONS (1)
  - Loss of libido [Recovered/Resolved]
